FAERS Safety Report 6127304-9 (Version None)
Quarter: 2009Q1

REPORT INFORMATION
  Report Type: 
  Country: None (occurrence: None)
  Receive Date: 20090319
  Receipt Date: 20090313
  Transmission Date: 20090719
  Serious: Yes (Hospitalization, Other)
  Sender: FDA-Public Use
  Company Number: 187726USA

PATIENT
  Age: 74 Year
  Sex: Female
  Weight: 61.2356 kg

DRUGS (6)
  1. WARFARIN SODIUM [Suspect]
     Indication: ARRHYTHMIA
     Dosage: 1/2 TABLET PO EVERY MON, TUE, THUR, FRI, SAT AND SUN; 1 TABLET PO EVERY WED
     Route: 048
     Dates: start: 20030101, end: 20090309
  2. ATENOLOL [Concomitant]
  3. LEVOXYL [Concomitant]
  4. LIPITOR [Concomitant]
  5. OMEPRAZOLE [Concomitant]
  6. METOCLOPRAMIDE [Concomitant]

REACTIONS (1)
  - INTRACRANIAL ANEURYSM [None]
